FAERS Safety Report 9464512 (Version 3)
Quarter: 2014Q2

REPORT INFORMATION
  Report Type: Spontaneous
  Country: US (occurrence: US)
  Receive Date: 20130819
  Receipt Date: 20140425
  Transmission Date: 20141212
  Serious: Yes (Hospitalization, Other)
  Sender: FDA-Public Use
  Company Number: US-BAXTER-2013BAX032053

PATIENT
  Age: 50 Year
  Sex: Female

DRUGS (2)
  1. DIANEAL LOW CALCIUM (ULTRABAG) [Suspect]
     Indication: PERITONEAL DIALYSIS
     Route: 033
  2. DIANEAL LOW CALCIUM (ULTRABAG) [Suspect]
     Indication: PERITONEAL DIALYSIS
     Route: 033

REACTIONS (9)
  - Blister [Not Recovered/Not Resolved]
  - Post procedural infection [Not Recovered/Not Resolved]
  - Blister infected [Not Recovered/Not Resolved]
  - Fall [Recovering/Resolving]
  - Head injury [Not Recovered/Not Resolved]
  - Epistaxis [Recovering/Resolving]
  - Cardiac arrest [Recovered/Resolved]
  - Blood pressure decreased [Recovering/Resolving]
  - Sedation [Unknown]
